FAERS Safety Report 6011428-0 (Version None)
Quarter: 2008Q4

REPORT INFORMATION
  Report Type: 
  Country: None (occurrence: None)
  Receive Date: 20081218
  Receipt Date: 20000829
  Transmission Date: 20090506
  Serious: Yes (Death, Hospitalization, Other)
  Sender: FDA-Public Use
  Company Number: US-ROCHE-244216

PATIENT
  Sex: Female
  Weight: 57.6 kg

DRUGS (16)
  1. NAPROSYN [Suspect]
     Route: 048
     Dates: start: 20000201, end: 20000219
  2. RISPERDAL [Suspect]
     Route: 048
     Dates: start: 19990501, end: 19990908
  3. RISPERDAL [Suspect]
     Route: 048
     Dates: start: 19990909
  4. DURAGESIC-100 [Suspect]
     Route: 061
     Dates: start: 20000201
  5. IBUPROFEN [Suspect]
     Route: 048
  6. PREDNISONE TAB [Suspect]
     Route: 048
     Dates: end: 20000219
  7. TYLENOL (CAPLET) [Concomitant]
     Indication: PAIN
     Route: 048
  8. CLARITIN [Concomitant]
     Route: 048
     Dates: start: 19990701
  9. SINEMET [Concomitant]
     Route: 048
  10. SYNTHROID [Concomitant]
     Route: 048
  11. ZOLOFT [Concomitant]
     Dosage: TAKEN AT NIGHT.
     Route: 048
  12. RESTORIL [Concomitant]
     Dosage: TAKEN AT NIGHT.
     Route: 048
  13. VENTOLIN [Concomitant]
     Route: 055
  14. ATROVENT [Concomitant]
     Route: 055
  15. CEFTIN [Concomitant]
     Route: 048
  16. LORAZEPAM [Concomitant]
     Route: 048

REACTIONS (11)
  - DEATH [None]
  - DEHYDRATION [None]
  - DEPRESSION [None]
  - DUODENAL ULCER [None]
  - ECCHYMOSIS [None]
  - HIATUS HERNIA [None]
  - MUSCULOSKELETAL PAIN [None]
  - PARKINSON'S DISEASE [None]
  - PNEUMONIA [None]
  - TARDIVE DYSKINESIA [None]
  - URINARY TRACT INFECTION [None]
